FAERS Safety Report 24532358 (Version 2)
Quarter: 2024Q4

REPORT INFORMATION
  Report Type: Report from Study
  Country: DE (occurrence: DE)
  Receive Date: 20241022
  Receipt Date: 20241128
  Transmission Date: 20250114
  Serious: Yes (Death)
  Sender: CSL BEHRING
  Company Number: DE-BEH-2024180730

PATIENT
  Age: 77 Year
  Sex: Male
  Weight: 64 kg

DRUGS (6)
  1. PRIVIGEN [Suspect]
     Active Substance: HUMAN IMMUNOGLOBULIN G
     Indication: Plasma cell myeloma
     Dosage: 20 G
     Route: 042
     Dates: start: 20240105
  2. PRIVIGEN [Suspect]
     Active Substance: HUMAN IMMUNOGLOBULIN G
     Dosage: 20 G
     Route: 042
     Dates: start: 20240111
  3. PRIVIGEN [Suspect]
     Active Substance: HUMAN IMMUNOGLOBULIN G
     Dosage: 20 G
     Route: 042
     Dates: start: 20240118
  4. PRIVIGEN [Suspect]
     Active Substance: HUMAN IMMUNOGLOBULIN G
     Dosage: 20 G
     Route: 042
     Dates: start: 20240221
  5. PRIVIGEN [Suspect]
     Active Substance: HUMAN IMMUNOGLOBULIN G
     Dosage: 20 G
     Route: 042
     Dates: start: 20240306
  6. PRIVIGEN [Suspect]
     Active Substance: HUMAN IMMUNOGLOBULIN G
     Dosage: UNK
     Route: 065

REACTIONS (4)
  - General physical health deterioration [Fatal]
  - Parkinsonism [Fatal]
  - Facial paresis [Fatal]
  - Neutropenia [Fatal]
